FAERS Safety Report 5941952-8 (Version None)
Quarter: 2008Q4

REPORT INFORMATION
  Report Type: 
  Country: None (occurrence: None)
  Receive Date: 20081105
  Receipt Date: 20081030
  Transmission Date: 20090506
  Serious: Yes (Hospitalization, Other)
  Sender: FDA-Public Use
  Company Number: US-MERCK-0608USA02227

PATIENT
  Age: 70 Year
  Sex: Female
  Weight: 80 kg

DRUGS (3)
  1. FOSAMAX [Suspect]
     Indication: OSTEOPOROSIS
     Route: 048
     Dates: start: 19971101, end: 20020501
  2. FOSAMAX [Suspect]
     Route: 048
     Dates: start: 20020501, end: 20050601
  3. FOSAMAX PLUS D [Suspect]
     Indication: OSTEOPOROSIS
     Route: 048
     Dates: start: 20050601, end: 20060101

REACTIONS (15)
  - ARTHROPATHY [None]
  - CATARACT [None]
  - CHEST X-RAY ABNORMAL [None]
  - CYST [None]
  - DEPRESSION [None]
  - HEADACHE [None]
  - INSOMNIA [None]
  - MUSCULOSKELETAL PAIN [None]
  - OSTEOMYELITIS [None]
  - OSTEONECROSIS [None]
  - PERIODONTAL DISEASE [None]
  - SINUS POLYP [None]
  - SINUSITIS [None]
  - TOOTH ABSCESS [None]
  - VAGINAL DYSPLASIA [None]
